FAERS Safety Report 6749678-8 (Version None)
Quarter: 2010Q2

REPORT INFORMATION
  Report Type: 
  Country: None (occurrence: None)
  Receive Date: 20100601
  Receipt Date: 20100524
  Transmission Date: 20101027
  Serious: Yes (Other)
  Sender: FDA-Public Use
  Company Number: B0658027A

PATIENT
  Age: 83 Year
  Sex: Female

DRUGS (5)
  1. LEUKERAN [Suspect]
     Route: 065
  2. MICARDIS [Concomitant]
  3. MONODUR [Concomitant]
  4. LIPITOR [Concomitant]
  5. ACIMAX [Concomitant]

REACTIONS (3)
  - COLD SWEAT [None]
  - INSOMNIA [None]
  - PNEUMONIA [None]
